FAERS Safety Report 18965314 (Version 1)
Quarter: 2021Q1

REPORT INFORMATION
  Report Type: Other
  Country: CA (occurrence: CA)
  Receive Date: 20210304
  Receipt Date: 20210304
  Transmission Date: 20210420
  Serious: Yes (Life-Threatening, Hospitalization, Disabling, Other)
  Sender: FDA-Public Use
  Company Number: CA-APOTEX-2021AP003885

PATIENT
  Age: 12 Day
  Sex: Male
  Weight: 3 kg

DRUGS (4)
  1. ABILIFY [Suspect]
     Active Substance: ARIPIPRAZOLE
     Indication: BIPOLAR DISORDER
     Dosage: 15 MILLIGRAM, QD
     Route: 064
  2. LAMICTAL [Suspect]
     Active Substance: LAMOTRIGINE
     Indication: BIPOLAR DISORDER
     Dosage: 250 MILLIGRAM, QD
     Route: 064
  3. SYNTHROID [Concomitant]
     Active Substance: LEVOTHYROXINE SODIUM
     Indication: PRODUCT USED FOR UNKNOWN INDICATION
     Dosage: UNK
     Route: 065
  4. SERTRALINE [Suspect]
     Active Substance: SERTRALINE HYDROCHLORIDE
     Indication: BIPOLAR DISORDER
     Dosage: 100 MILLIGRAM, QD
     Route: 064

REACTIONS (10)
  - Thrombosis [Unknown]
  - Crystal urine present [Unknown]
  - Dehydration [Unknown]
  - Hypernatraemia [Unknown]
  - Heart rate increased [Unknown]
  - Skin graft [Unknown]
  - Foot amputation [Unknown]
  - Weight decreased [Unknown]
  - Extremity necrosis [Unknown]
  - Somnolence [Unknown]
